FAERS Safety Report 8615403-9 (Version None)
Quarter: 2012Q3

REPORT INFORMATION
  Report Type: 
  Country: None (occurrence: None)
  Receive Date: 20120823
  Receipt Date: 20120814
  Transmission Date: 20120928
  Serious: Yes (Other)
  Sender: FDA-Public Use
  Company Number: BR-JNJFOC-20120808431

PATIENT
  Sex: Female
  Weight: 62 kg

DRUGS (4)
  1. REMICADE [Suspect]
     Route: 042
     Dates: start: 20101022
  2. REMICADE [Suspect]
     Indication: CROHN'S DISEASE
     Route: 042
     Dates: start: 20120813
  3. AZATHIOPRINE SODIUM [Concomitant]
     Indication: CROHN'S DISEASE
     Dosage: 2.5 DOSAGE
     Route: 048
  4. OMEPRAZOLE [Concomitant]
     Route: 048

REACTIONS (5)
  - DIZZINESS [None]
  - VOMITING [None]
  - NAUSEA [None]
  - INFUSION RELATED REACTION [None]
  - MALAISE [None]
